FAERS Safety Report 17924359 (Version 3)
Quarter: 2020Q4

REPORT INFORMATION
  Report Type: Other
  Country: US (occurrence: US)
  Receive Date: 20200622
  Receipt Date: 20201221
  Transmission Date: 20210113
  Serious: Yes (Other)
  Sender: FDA-Public Use
  Company Number: US-ACORDA-ACO_164419_2020

PATIENT
  Sex: Female

DRUGS (4)
  1. INBRIJA [Suspect]
     Active Substance: LEVODOPA
     Indication: ON AND OFF PHENOMENON
     Dosage: CONTENTS OF TWO CAPSULES (84 MG), BID, MAX 2 DOSES IN 24 HRS
     Dates: start: 202003
  2. CARBIDOPA/LEVODOPA [Concomitant]
     Active Substance: CARBIDOPA\LEVODOPA
     Indication: PRODUCT USED FOR UNKNOWN INDICATION
     Dosage: 3 DOSAGE FORM, 5X/QD
     Route: 065
  3. INBRIJA [Suspect]
     Active Substance: LEVODOPA
     Indication: PARKINSON^S DISEASE
     Dosage: CONTENTS OF TWO CAPSULES (84 MG), PRN NOT TO EXCEED 5 DOSES PER DAY / BID
  4. INBRIJA [Suspect]
     Active Substance: LEVODOPA
     Dosage: 1 DOSAGE FORM, QD

REACTIONS (4)
  - Cerebrovascular accident [Not Recovered/Not Resolved]
  - Constipation [Unknown]
  - Intentional underdose [Unknown]
  - Therapy cessation [Unknown]
